FAERS Safety Report 11239838 (Version 1)
Quarter: 2015Q3

REPORT INFORMATION
  Report Type: Spontaneous
  Country: US (occurrence: None)
  Receive Date: 20150701
  Receipt Date: 20150701
  Transmission Date: 20151125
  Serious: No
  Sender: FDA-Public Use
  Company Number: None

PATIENT

DRUGS (2)
  1. FIRST VANCOMYCIN RX [Suspect]
     Active Substance: VANCOMYCIN HYDROCHLORIDE
     Dosage: POWDER FOR RECONSTITUTION; BOTTLE; 10 OZ
     Route: 048
  2. FIRST VANCOMYCIN RX [Suspect]
     Active Substance: VANCOMYCIN HYDROCHLORIDE
     Dosage: 10 OZ BOTTLE
     Route: 048

REACTIONS (2)
  - Product label confusion [None]
  - Circumstance or information capable of leading to medication error [None]
